FAERS Safety Report 24351357 (Version 1)
Quarter: 2024Q3

REPORT INFORMATION
  Report Type: Report from Study
  Country: IT (occurrence: IT)
  Receive Date: 20240923
  Receipt Date: 20240923
  Transmission Date: 20241016
  Serious: No
  Sender: ROCHE
  Company Number: IT-ROCHE-2536744

PATIENT
  Age: 37 Year
  Sex: Female
  Weight: 76.0 kg

DRUGS (15)
  1. HERCEPTIN [Suspect]
     Active Substance: TRASTUZUMAB
     Indication: HER2 positive breast cancer
     Dosage: Q3W - EVERY 3 WEEKS?MOST RECENT DOSE WAS ADMINISTRED ON //2019, 15/JUL/2019
     Route: 042
     Dates: start: 20190218
  2. PERJETA [Suspect]
     Active Substance: PERTUZUMAB
     Indication: HER2 positive breast cancer
     Dosage: Q3W - EVERY 3 WEEKS.?MOST RECENT DOSE WAS ADMINISTRED ON //2019, 15/JUL/2019
     Route: 042
     Dates: start: 20190218
  3. AROMASIN [Suspect]
     Active Substance: EXEMESTANE
     Indication: HER2 positive breast cancer
     Dosage: O.D. - ONCE DAILY
     Route: 048
     Dates: start: 20190117
  4. TAXOL [Suspect]
     Active Substance: PACLITAXEL
     Indication: HER2 positive breast cancer
     Dosage: FREQUENCY: OTHER MOST RECENT DOSE PRIOR TO THE EVENT: //2019, 24/JUN/2019
     Route: 042
     Dates: start: 20190128
  5. TAXOL [Suspect]
     Active Substance: PACLITAXEL
     Dosage: FREQUENCY: OTHER MOST RECENT DOSE PRIOR TO THE EVENT: //2019, 24/JUN/2019
     Route: 042
     Dates: start: 20190603, end: 2019
  6. LEUPROLIDE ACETATE [Suspect]
     Active Substance: ISOPROPYL ALCOHOL\LEUPROLIDE ACETATE
     Indication: HER2 positive breast cancer
     Route: 058
     Dates: start: 20190117
  7. PARAPLATIN [Suspect]
     Active Substance: CARBOPLATIN
     Indication: HER2 positive breast cancer
     Dosage: FREQUENCY: Q3W - EVERY 3 WEEKS
     Route: 042
     Dates: start: 20190128, end: 2019
  8. PARAPLATIN [Suspect]
     Active Substance: CARBOPLATIN
     Dosage: FREQUENCY: Q3W - EVERY 3 WEEKS. MOST RECENT DOSE: /JUN/2019
     Route: 042
     Dates: start: 20190610
  9. PARAPLATIN [Suspect]
     Active Substance: CARBOPLATIN
     Dosage: FREQUENCY: Q3W - EVERY 3 WEEKS? MOST RECENT DOSE PRIOR TO THE EVENT: 24/JUN/2019
     Route: 042
     Dates: start: 20190624
  10. DEXAMETHASONE [Concomitant]
     Active Substance: DEXAMETHASONE
     Indication: Product used for unknown indication
     Dosage: ONGOING = NOT CHECKED
     Dates: start: 20190409, end: 20190722
  11. ZOFRAN [Concomitant]
     Active Substance: ONDANSETRON HYDROCHLORIDE
     Dosage: ONGOING = CHECKED
     Dates: start: 20190722
  12. LEVOTHYROXINE SODIUM [Concomitant]
     Active Substance: LEVOTHYROXINE SODIUM
     Dosage: ONGOING = CHECKED
  13. TRIMETON [Concomitant]
     Active Substance: CHLORPHENIRAMINE MALEATE
     Dates: start: 20190128, end: 20190722
  14. RANITIDINE [Concomitant]
     Active Substance: RANITIDINE
     Dosage: ONGOING = NOT CHECKED
     Dates: start: 20190118, end: 20190722
  15. ALIZAPRIDE HYDROCHLORIDE [Concomitant]
     Active Substance: ALIZAPRIDE HYDROCHLORIDE
     Dosage: ONGOING = CHECKED
     Dates: start: 20190204

REACTIONS (2)
  - Asthenia [Recovered/Resolved]
  - Diarrhoea [Recovered/Resolved]

NARRATIVE: CASE EVENT DATE: 20190624
